FAERS Safety Report 21577767 (Version 1)
Quarter: 2022Q4

REPORT INFORMATION
  Report Type: Spontaneous
  Country: JP (occurrence: None)
  Receive Date: 20221110
  Receipt Date: 20221110
  Transmission Date: 20230112
  Serious: Yes (Hospitalization)
  Sender: FDA-Public Use
  Company Number: 2022A369063

PATIENT
  Age: 84 Year
  Sex: Female
  Weight: 52.9 kg

DRUGS (11)
  1. ROSUVASTATIN [Suspect]
     Active Substance: ROSUVASTATIN
     Indication: Hypercholesterolaemia
     Dosage: 5 MG/12 HOURS
     Route: 048
     Dates: start: 20221013
  2. EZETIMIBE [Suspect]
     Active Substance: EZETIMIBE
     Indication: Hypercholesterolaemia
     Dosage: 10 MG/12 HOURS
     Route: 048
     Dates: end: 20221013
  3. OLMESARTAN [Concomitant]
     Active Substance: OLMESARTAN
     Route: 065
  4. FAMOTIDINE [Concomitant]
     Active Substance: FAMOTIDINE
     Route: 048
  5. PLAVIX [Concomitant]
     Active Substance: CLOPIDOGREL BISULFATE
     Route: 048
  6. INDAPAMIDE [Concomitant]
     Active Substance: INDAPAMIDE
     Route: 048
  7. ELDECALCITOL [Concomitant]
     Active Substance: ELDECALCITOL
     Route: 048
  8. NICORANDIL [Concomitant]
     Active Substance: NICORANDIL
     Route: 048
  9. LUNESTA [Concomitant]
     Active Substance: ESZOPICLONE
     Route: 048
  10. ALOSENN [Concomitant]
     Route: 048
  11. MINODRONIC ACID [Concomitant]
     Active Substance: MINODRONIC ACID
     Route: 048

REACTIONS (8)
  - Myalgia [Recovered/Resolved]
  - Fall [Unknown]
  - Blood creatine phosphokinase increased [Recovered/Resolved]
  - Pyrexia [Recovered/Resolved]
  - Urinary tract infection [Recovered/Resolved]
  - Aspartate aminotransferase increased [Recovering/Resolving]
  - Alanine aminotransferase increased [Recovering/Resolving]
  - Off label use [Unknown]

NARRATIVE: CASE EVENT DATE: 20221010
